FAERS Safety Report 25885322 (Version 1)
Quarter: 2025Q4

REPORT INFORMATION
  Report Type: Spontaneous
  Country: EU (occurrence: EU)
  Receive Date: 20251006
  Receipt Date: 20251006
  Transmission Date: 20260117
  Serious: Yes (Hospitalization)
  Sender: TEVA
  Company Number: None

PATIENT
  Age: 75 Year
  Sex: Female
  Weight: 52 kg

DRUGS (1)
  1. OXALIPLATIN [Suspect]
     Active Substance: OXALIPLATIN
     Indication: Adjuvant therapy
     Dosage: OXALIPLATIN 5MG/ML, ADMINISTERED BY RCP EVERY 2 WEEKS, ACCORDING TO THE PATIENT^S BSA.
     Route: 042

REACTIONS (4)
  - Dyspnoea [Recovered/Resolved]
  - Flushing [Recovered/Resolved]
  - Paraesthesia oral [Recovered/Resolved]
  - Nasal obstruction [Recovered/Resolved]

NARRATIVE: CASE EVENT DATE: 20250903
